FAERS Safety Report 7798241-9 (Version None)
Quarter: 2011Q4

REPORT INFORMATION
  Report Type: 
  Country: None (occurrence: None)
  Receive Date: 20111005
  Receipt Date: 20110926
  Transmission Date: 20120403
  Serious: Yes (Hospitalization, Other)
  Sender: FDA-Public Use
  Company Number: JP-MPIJNJ-2011-04050

PATIENT

DRUGS (11)
  1. VELCADE [Suspect]
     Indication: MULTIPLE MYELOMA
     Dosage: 1.3 MG/M2, CYCLIC
     Route: 042
     Dates: start: 20110214, end: 20110817
  2. COUGH AND COLD PREPARATIONS [Concomitant]
     Indication: NASOPHARYNGITIS
     Dosage: 3 G, UNK
     Route: 048
     Dates: start: 20110822, end: 20110823
  3. LOPERAMIDE HCL [Suspect]
     Indication: DIARRHOEA
     Dosage: 1 MG, UNK
     Route: 048
     Dates: start: 20110428
  4. FAMOTIDINE [Concomitant]
     Indication: GASTRITIS PROPHYLAXIS
     Dosage: 20 MG, UNK
     Route: 048
     Dates: start: 20110214
  5. ALLOID G [Concomitant]
     Indication: ABDOMINAL DISCOMFORT
     Dosage: 30 ML, UNK
     Route: 048
     Dates: start: 20110609
  6. ACYCLOVIR [Concomitant]
     Indication: ANTIVIRAL PROPHYLAXIS
     Dosage: 200 MG, UNK
     Route: 048
     Dates: start: 20110214
  7. BITSAN [Concomitant]
     Indication: EPIGASTRIC DISCOMFORT
     Dosage: 4.2 G, UNK
     Route: 048
     Dates: start: 20110425
  8. DEXAMETHASONE [Suspect]
     Indication: MULTIPLE MYELOMA
     Dosage: 40 MG, CYCLIC
     Route: 048
     Dates: start: 20110214, end: 20110818
  9. MUCOSTA [Concomitant]
     Indication: GASTRITIS PROPHYLAXIS
     Dosage: 300 MG, UNK
     Route: 048
     Dates: start: 20110214
  10. BIO THREE                          /01068501/ [Concomitant]
     Indication: DIARRHOEA
     Dosage: 3 DF, UNK
     Route: 048
     Dates: start: 20110516
  11. TOMIRON [Concomitant]
     Indication: NASOPHARYNGITIS
     Dosage: 300 MG, UNK
     Route: 048
     Dates: start: 20110822, end: 20110823

REACTIONS (3)
  - BRONCHOPNEUMONIA [None]
  - PERIOSTITIS [None]
  - CONSTIPATION [None]
